FAERS Safety Report 4622039-3 (Version None)
Quarter: 2005Q1

REPORT INFORMATION
  Report Type: 
  Country: None (occurrence: None)
  Receive Date: 20050328
  Receipt Date: 20050321
  Transmission Date: 20050727
  Serious: Yes (Hospitalization, Disabling)
  Sender: FDA-Public Use
  Company Number: HQ5350515NOV2002

PATIENT
  Age: 42 Year
  Sex: Female
  Weight: 77.18 kg

DRUGS (3)
  1. DIMETAPP (BROMEPHENIRAMINE/PHENYLPROPANOLAMINE, EXTENTAB) [Suspect]
     Indication: HEADACHE
     Dosage: ORAL
     Route: 048
     Dates: start: 20000901, end: 20001101
  2. DIMETAPP (BROMEPHENIRAMINE/PHENYLPROPANOLAMINE, EXTENTAB) [Suspect]
     Indication: SINUS CONGESTION
     Dosage: ORAL
     Route: 048
     Dates: start: 20000901, end: 20001101
  3. UNSPECIFIED CONTRACEPTIVE [Concomitant]

REACTIONS (3)
  - CEREBRAL INFARCTION [None]
  - HAEMORRHAGIC STROKE [None]
  - HEADACHE [None]
